FAERS Safety Report 13484106 (Version 1)
Quarter: 2017Q2

REPORT INFORMATION
  Report Type: Spontaneous
  Country: GB (occurrence: GB)
  Receive Date: 20170426
  Receipt Date: 20170426
  Transmission Date: 20170830
  Serious: Yes (Death, Other)
  Sender: FDA-Public Use
  Company Number: GB-ACCORD-050582

PATIENT
  Age: 78 Year
  Sex: Female
  Weight: 90 kg

DRUGS (11)
  1. FOLIC ACID. [Concomitant]
     Active Substance: FOLIC ACID
  2. FUROSEMIDE. [Concomitant]
     Active Substance: FUROSEMIDE
  3. DIHYDROCODEINE BITARTRATE/PARACETAMOL [Concomitant]
  4. ISOSORBIDE. [Concomitant]
     Active Substance: ISOSORBIDE
  5. AMLODIPINE [Concomitant]
     Active Substance: AMLODIPINE BESYLATE
  6. SIMVASTATIN. [Concomitant]
     Active Substance: SIMVASTATIN
  7. METHOTREXATE. [Suspect]
     Active Substance: METHOTREXATE
     Indication: RHEUMATOID ARTHRITIS
     Route: 030
  8. OMEPRAZOLE. [Concomitant]
     Active Substance: OMEPRAZOLE
  9. ASPIRIN. [Concomitant]
     Active Substance: ASPIRIN
  10. ATENOLOL/ATENOLOL HYDROCHLORIDE [Concomitant]
  11. IRON [Concomitant]
     Active Substance: IRON

REACTIONS (2)
  - Stomatitis [Not Recovered/Not Resolved]
  - Agranulocytosis [Fatal]

NARRATIVE: CASE EVENT DATE: 20170317
